FAERS Safety Report 17521991 (Version 2)
Quarter: 2020Q2

REPORT INFORMATION
  Report Type: Spontaneous
  Country: US (occurrence: US)
  Receive Date: 20200310
  Receipt Date: 20200429
  Transmission Date: 20200713
  Serious: No
  Sender: FDA-Public Use
  Company Number: US-FARMAPROD-201912-2019

PATIENT
  Age: 56 Year
  Sex: Female

DRUGS (10)
  1. OXERVATE [Suspect]
     Active Substance: CENEGERMIN-BKBJ
     Indication: ACANTHAMOEBA KERATITIS
     Route: 047
     Dates: start: 20191101, end: 20191225
  2. OXERVATE [Suspect]
     Active Substance: CENEGERMIN-BKBJ
     Indication: HYPOAESTHESIA EYE
  3. PRED FORTE [Concomitant]
     Active Substance: PREDNISOLONE ACETATE
     Indication: INFLAMMATION
     Dates: start: 20190424
  4. OXERVATE [Suspect]
     Active Substance: CENEGERMIN-BKBJ
     Indication: ULCERATIVE KERATITIS
  5. COMBIGAN [Concomitant]
     Active Substance: BRIMONIDINE TARTRATE\TIMOLOL MALEATE
     Indication: INTRAOCULAR PRESSURE INCREASED
     Dates: start: 20190212
  6. OXERVATE [Suspect]
     Active Substance: CENEGERMIN-BKBJ
     Indication: NEUROTROPHIC KERATOPATHY
  7. LATANOPROST. [Concomitant]
     Active Substance: LATANOPROST
     Indication: INTRAOCULAR PRESSURE INCREASED
     Dosage: EVERY BEDTIME
     Dates: start: 20190212
  8. SERUM TEARS [Concomitant]
     Indication: OCULAR SURFACE DISEASE
     Dates: start: 20190620
  9. OXERVATE [Suspect]
     Active Substance: CENEGERMIN-BKBJ
     Indication: ULCERATIVE KERATITIS
  10. BESIVANCE [Concomitant]
     Active Substance: BESIFLOXACIN
     Indication: INFECTION
     Dates: start: 20190108

REACTIONS (3)
  - Eye pain [Not Recovered/Not Resolved]
  - Nasal congestion [Recovering/Resolving]
  - Headache [Unknown]

NARRATIVE: CASE EVENT DATE: 20191120
